FAERS Safety Report 21123183 (Version 1)
Quarter: 2022Q3

REPORT INFORMATION
  Report Type: Spontaneous
  Country: US (occurrence: US)
  Receive Date: 20220724
  Receipt Date: 20220724
  Transmission Date: 20221026
  Serious: No
  Sender: FDA-Public Use
  Company Number: US-SA-SAC20220718000677

PATIENT
  Sex: Male

DRUGS (13)
  1. DUPIXENT [Suspect]
     Active Substance: DUPILUMAB
     Dosage: 300 MG, QOW
     Route: 058
  2. AMPICILLIN [Concomitant]
     Active Substance: AMPICILLIN
  3. FLUTICASONE PROPIONATE [Concomitant]
     Active Substance: FLUTICASONE PROPIONATE
  4. GABAPENTIN [Concomitant]
     Active Substance: GABAPENTIN
  5. LIDOCAINE [Concomitant]
     Active Substance: LIDOCAINE
  6. METOPROLOL TARTRATE [Concomitant]
     Active Substance: METOPROLOL TARTRATE
  7. NAPROXEN [Concomitant]
     Active Substance: NAPROXEN
  8. OXYCODONE [Concomitant]
     Active Substance: OXYCODONE
  9. PANTOPRAZOLE [Concomitant]
     Active Substance: PANTOPRAZOLE
  10. SYMBICORT [Concomitant]
     Active Substance: BUDESONIDE\FORMOTEROL FUMARATE DIHYDRATE
  11. TIZANIDINE [Concomitant]
     Active Substance: TIZANIDINE
  12. VENTOLIN HFA [Concomitant]
     Active Substance: ALBUTEROL SULFATE
  13. IMS POTASIUM CHLORIDE [Concomitant]

REACTIONS (3)
  - Asthma [Unknown]
  - Eczema [Unknown]
  - Hypoacusis [Unknown]
